FAERS Safety Report 25645608 (Version 1)
Quarter: 2025Q3

REPORT INFORMATION
  Report Type: Spontaneous
  Country: US (occurrence: US)
  Receive Date: 20250805
  Receipt Date: 20250805
  Transmission Date: 20251020
  Serious: No
  Sender: JOHNSON AND JOHNSON
  Company Number: US-JNJFOC-20250800715

PATIENT
  Sex: Male

DRUGS (3)
  1. HALDOL DECANOATE [Suspect]
     Active Substance: HALOPERIDOL DECANOATE
     Indication: Product used for unknown indication
     Route: 065
  2. ZYPREXA [Suspect]
     Active Substance: OLANZAPINE
  3. GABAPENTIN [Suspect]
     Active Substance: GABAPENTIN

REACTIONS (1)
  - Condition aggravated [Unknown]
